FAERS Safety Report 4466268-0 (Version None)
Quarter: 2004Q4

REPORT INFORMATION
  Report Type: 
  Country: None (occurrence: None)
  Receive Date: 20041005
  Receipt Date: 20040823
  Transmission Date: 20050328
  Serious: Yes (Death)
  Sender: FDA-Public Use
  Company Number: US-ABBOTT-04P-163-0271210-00

PATIENT
  Sex: Female
  Weight: 63.56 kg

DRUGS (3)
  1. SYNTHROID [Suspect]
     Indication: THYROID DISORDER
     Route: 048
     Dates: start: 20040101
  2. MEDICATION FOR VOMITING [Concomitant]
     Indication: VOMITING
  3. DIARRHEA MEDICATION [Concomitant]
     Indication: DIARRHOEA

REACTIONS (1)
  - CARCINOMA [None]
